FAERS Safety Report 7950849-3 (Version None)
Quarter: 2011Q4

REPORT INFORMATION
  Report Type: 
  Country: None (occurrence: None)
  Receive Date: 20111201
  Receipt Date: 20111122
  Transmission Date: 20120403
  Serious: Yes (Hospitalization)
  Sender: FDA-Public Use
  Company Number: US-BIOGENIDEC-2011BI040758

PATIENT
  Age: 31 Year
  Sex: Female

DRUGS (3)
  1. TOPAMAX [Concomitant]
  2. TYSABRI [Suspect]
     Indication: MULTIPLE SCLEROSIS
     Route: 042
     Dates: start: 20101103
  3. TYSABRI [Suspect]
     Route: 042
     Dates: start: 20080923, end: 20091215

REACTIONS (1)
  - CHOLECYSTITIS [None]
